FAERS Safety Report 9271331 (Version 10)
Quarter: 2014Q2

REPORT INFORMATION
  Report Type: Report from Study
  Country: CA (occurrence: CA)
  Receive Date: 20130506
  Receipt Date: 20140513
  Transmission Date: 20141212
  Serious: Yes (Other)
  Sender: FDA-Public Use
  Company Number: PHHY2011CA40382

PATIENT
  Age: 46 Year
  Sex: Female

DRUGS (3)
  1. SANDOSTATIN LAR [Suspect]
     Indication: CARCINOID TUMOUR
     Dosage: 30 MG, EVERY 4 WEEKS
     Route: 030
     Dates: start: 20100902, end: 20140403
  2. CALCIUM [Concomitant]
     Dosage: UNK UKN, UNK
  3. MAGNESIUM [Concomitant]
     Dosage: UNK UKN, UNK

REACTIONS (25)
  - Pericardial effusion [Not Recovered/Not Resolved]
  - Hepatomegaly [Recovered/Resolved]
  - Diabetes mellitus [Unknown]
  - Metastases to liver [Unknown]
  - Ascites [Not Recovered/Not Resolved]
  - Metastases to stomach [Unknown]
  - Metastases to lymph nodes [Unknown]
  - Injection site mass [Unknown]
  - Local swelling [Unknown]
  - Hypoaesthesia [Recovering/Resolving]
  - Erythema [Unknown]
  - Muscle spasms [Unknown]
  - Liver disorder [Unknown]
  - Pain [Recovering/Resolving]
  - Pain in extremity [Unknown]
  - Musculoskeletal pain [Unknown]
  - Depressed mood [Unknown]
  - Injection site bruising [Recovered/Resolved]
  - Lacrimation increased [Unknown]
  - Muscle tightness [Unknown]
  - Abdominal distension [Not Recovered/Not Resolved]
  - Rash pruritic [Unknown]
  - Nausea [Unknown]
  - Decreased appetite [Recovered/Resolved]
  - Drug ineffective [Unknown]
